FAERS Safety Report 7989138-X (Version None)
Quarter: 2011Q4

REPORT INFORMATION
  Report Type: 
  Country: None (occurrence: None)
  Receive Date: 20111219
  Receipt Date: 20111215
  Transmission Date: 20120403
  Serious: Yes (Death, Other)
  Sender: FDA-Public Use
  Company Number: US-AMGEN-USASP2011022120

PATIENT
  Age: 84 Year
  Sex: Female

DRUGS (25)
  1. NEULASTA [Suspect]
     Indication: CHEMOTHERAPY
     Dosage: 6 MG, UNK
     Dates: start: 20100322
  2. ALLOPURINOL [Concomitant]
     Dosage: 300 MG, QD
     Dates: end: 20100607
  3. MACROBID [Concomitant]
     Dosage: 100 MG, BID
  4. RITUXIMAB [Concomitant]
     Indication: DIFFUSE LARGE B-CELL LYMPHOMA
  5. VINCRISTINE [Concomitant]
     Indication: DIFFUSE LARGE B-CELL LYMPHOMA
  6. PREMARIN [Concomitant]
     Dosage: 0.625 UNK, UNK
     Dates: end: 20100607
  7. PERCOCET [Concomitant]
     Dosage: UNK UNK, PRN
     Dates: end: 20100607
  8. LORAZEPAM [Concomitant]
     Dosage: 0.5 MG, PRN
  9. NPLATE [Suspect]
     Indication: IDIOPATHIC THROMBOCYTOPENIC PURPURA
     Dosage: 3 MUG/KG, UNK
     Dates: start: 20101210, end: 20110121
  10. IMDUR [Concomitant]
     Dosage: 30 MG, QD
     Dates: end: 20100607
  11. OMEPRAZOLE [Concomitant]
     Dosage: 20 MG, UNK
  12. DIOVAN [Concomitant]
     Dosage: 320 MG, QD
     Dates: end: 20100607
  13. FLORASTOR [Concomitant]
     Dosage: 250 MG, UNK
  14. WELCHOL [Concomitant]
     Dosage: 1250 MG, QD
  15. POTASSIUM CHLORIDE [Concomitant]
     Dosage: 20 MEQ, QD
  16. DOXORUBICIN HCL [Concomitant]
     Indication: DIFFUSE LARGE B-CELL LYMPHOMA
  17. FUROSEMIDE [Concomitant]
     Dosage: 40 MG, QD
  18. LEVOTHYROXINE SODIUM [Concomitant]
     Dosage: 75 MUG, QD
  19. TRAZODONE HCL [Concomitant]
     Dosage: 50 MG, QD
  20. CYCLOPHOSPHAMIDE [Concomitant]
     Indication: DIFFUSE LARGE B-CELL LYMPHOMA
  21. PREDNISONE [Concomitant]
     Indication: DIFFUSE LARGE B-CELL LYMPHOMA
  22. CADUET [Concomitant]
     Dosage: UNK UNK, QD
     Dates: end: 20100607
  23. ALBUTEROL [Concomitant]
     Dosage: UNK
     Dates: end: 20100607
  24. METOPROLOL TARTRATE [Concomitant]
     Dosage: 25 MG, UNK
  25. REMERON [Concomitant]
     Dosage: 15 MG, UNK

REACTIONS (3)
  - LYMPHOMA [None]
  - BLOOD IRON DECREASED [None]
  - LYMPHOCYTOSIS [None]
